FAERS Safety Report 5206793-8 (Version None)
Quarter: 2006Q4

REPORT INFORMATION
  Report Type: 
  Country: None (occurrence: None)
  Receive Date: 20061026
  Receipt Date: 20060907
  Transmission Date: 20070319
  Serious: No
  Sender: FDA-Public Use
  Company Number: 2006109445

PATIENT
  Age: 36 Year
  Sex: Male
  Weight: 136.0791 kg

DRUGS (3)
  1. LYRICA [Suspect]
     Indication: MUSCLE SPASMS
     Dosage: 150 MG (75 MG, 2 IN 1 D)
     Dates: start: 20060601
  2. MOTRIN [Concomitant]
  3. VICODIN [Concomitant]

REACTIONS (2)
  - DRUG INEFFECTIVE [None]
  - DRUG SCREEN FALSE POSITIVE [None]
